FAERS Safety Report 4840081-4 (Version None)
Quarter: 2005Q4

REPORT INFORMATION
  Report Type: 
  Country: None (occurrence: None)
  Receive Date: 20051125
  Receipt Date: 20051111
  Transmission Date: 20060501
  Serious: Yes (Life-Threatening, Other)
  Sender: FDA-Public Use
  Company Number: 2005-DE-04945GD

PATIENT
  Age: 55 Year
  Sex: Male

DRUGS (7)
  1. FUROSEMIDE [Suspect]
     Dosage: 40 MG
  2. SALBUTAMOL (SALBUTAMOL) [Suspect]
     Indication: HYPERKALAEMIA
     Dosage: IH
     Route: 055
  3. SPIRONOLACTONE [Suspect]
     Dosage: 100 MG
  4. INSULIN [Suspect]
     Indication: HYPERKALAEMIA
  5. GLUCOSE (GLUCOSE) [Suspect]
     Indication: HYPERKALAEMIA
  6. SODIUM BICARBONATE IN PLASTIC CONTAINER [Concomitant]
     Indication: HYPERKALAEMIA
  7. CATION-EXCHANGING RESIN [Suspect]
     Indication: HYPERKALAEMIA

REACTIONS (11)
  - ELECTROCARDIOGRAM QRS COMPLEX PROLONGED [None]
  - ELECTROCARDIOGRAM T WAVE AMPLITUDE INCREASED [None]
  - HEPATORENAL SYNDROME [None]
  - HYPERKALAEMIA [None]
  - HYPONATRAEMIA [None]
  - MUSCULAR WEAKNESS [None]
  - OLIGURIA [None]
  - REFUSAL OF TREATMENT BY PATIENT [None]
  - RENAL IMPAIRMENT [None]
  - SINOATRIAL BLOCK [None]
  - THERAPY NON-RESPONDER [None]
